FAERS Safety Report 21591097 (Version 3)
Quarter: 2023Q1

REPORT INFORMATION
  Report Type: Spontaneous
  Country: JP (occurrence: JP)
  Receive Date: 20221114
  Receipt Date: 20230125
  Transmission Date: 20230417
  Serious: Yes (Hospitalization)
  Sender: FDA-Public Use
  Company Number: JP-002147023-NVSJ2022JP101156

PATIENT
  Age: 41 Year
  Sex: Female
  Weight: 109 kg

DRUGS (7)
  1. PREGABALIN [Suspect]
     Active Substance: PREGABALIN
     Indication: Product used for unknown indication
     Dosage: 3225 MG
     Route: 048
  2. AMLODIPINE [Suspect]
     Active Substance: AMLODIPINE BESYLATE
     Indication: Product used for unknown indication
     Dosage: 65 MG
     Route: 048
  3. SERTRALINE [Suspect]
     Active Substance: SERTRALINE HYDROCHLORIDE
     Indication: Product used for unknown indication
     Dosage: 175 MG
     Route: 065
  4. MONTELUKAST [Suspect]
     Active Substance: MONTELUKAST SODIUM
     Indication: Product used for unknown indication
     Dosage: 100 MG
     Route: 048
  5. CELECOXIB [Suspect]
     Active Substance: CELECOXIB
     Indication: Product used for unknown indication
     Dosage: 4300 MG
     Route: 048
  6. CLONAZEPAM [Suspect]
     Active Substance: CLONAZEPAM
     Indication: Product used for unknown indication
     Dosage: 1 MG
     Route: 048
  7. BELSOMRA [Concomitant]
     Active Substance: SUVOREXANT
     Indication: Product used for unknown indication
     Dosage: 40 MG
     Route: 048

REACTIONS (5)
  - Depressed level of consciousness [Recovering/Resolving]
  - Glossoptosis [Unknown]
  - Blood pressure decreased [Unknown]
  - Overdose [Unknown]
  - Intentional product use issue [Unknown]
